FAERS Safety Report 8120706-0 (Version None)
Quarter: 2012Q1

REPORT INFORMATION
  Report Type: 
  Country: None (occurrence: None)
  Receive Date: 20120207
  Receipt Date: 20120201
  Transmission Date: 20120608
  Serious: Yes (Hospitalization, Other)
  Sender: FDA-Public Use
  Company Number: US-ABBOTT-12P-163-0900127-00

PATIENT
  Sex: Male
  Weight: 68.1 kg

DRUGS (5)
  1. PEPCID [Concomitant]
     Indication: AUTOIMMUNE DISORDER
  2. HUMIRA [Suspect]
     Dates: start: 20110901, end: 20111122
  3. PAROXETINE [Concomitant]
     Indication: DEPRESSION
  4. HUMIRA [Suspect]
     Indication: JUVENILE ARTHRITIS
     Dates: start: 20090101, end: 20110701
  5. ZYRTEC [Concomitant]
     Indication: HYPERSENSITIVITY

REACTIONS (12)
  - WHITE BLOOD CELL COUNT INCREASED [None]
  - STAPHYLOCOCCAL INFECTION [None]
  - GAIT DISTURBANCE [None]
  - DYSSTASIA [None]
  - VISUAL IMPAIRMENT [None]
  - PYREXIA [None]
  - PAIN [None]
  - NASAL MUCOSAL DISORDER [None]
  - VOMITING [None]
  - PROSTATITIS [None]
  - RETINAL DETACHMENT [None]
  - FATIGUE [None]
